FAERS Safety Report 20143336 (Version 2)
Quarter: 2022Q1

REPORT INFORMATION
  Report Type: Report from Study
  Country: US (occurrence: US)
  Receive Date: 20211203
  Receipt Date: 20220301
  Transmission Date: 20220423
  Serious: Yes (Hospitalization)
  Sender: FDA-Public Use
  Company Number: US-TAKEDA-2021TUS073557

PATIENT
  Age: 4 Year
  Sex: Male

DRUGS (10)
  1. TEDUGLUTIDE [Suspect]
     Active Substance: TEDUGLUTIDE
     Indication: Short-bowel syndrome
     Dosage: 0.67 MILLIGRAM, QD
     Route: 065
     Dates: start: 20200116
  2. TEDUGLUTIDE [Suspect]
     Active Substance: TEDUGLUTIDE
     Indication: Short-bowel syndrome
     Dosage: 0.67 MILLIGRAM, QD
     Route: 065
     Dates: start: 20200116
  3. TEDUGLUTIDE [Suspect]
     Active Substance: TEDUGLUTIDE
     Indication: Short-bowel syndrome
     Dosage: 0.67 MILLIGRAM, QD
     Route: 065
     Dates: start: 20200116
  4. TEDUGLUTIDE [Suspect]
     Active Substance: TEDUGLUTIDE
     Indication: Short-bowel syndrome
     Dosage: 0.67 MILLIGRAM, QD
     Route: 065
     Dates: start: 20200116
  5. RESINOL [Concomitant]
     Active Substance: PETROLATUM\RESORCINOL
     Indication: Rash
     Dosage: UNK
     Route: 061
     Dates: start: 20180608
  6. LOPERAMIDE [Concomitant]
     Active Substance: LOPERAMIDE
     Indication: Faecal volume decreased
     Dosage: 1 MILLIGRAM, TID
     Route: 048
     Dates: start: 20180418
  7. FERROUS SULFATE [Concomitant]
     Active Substance: FERROUS SULFATE
     Indication: Blood iron decreased
     Dosage: 45 MILLIGRAM, QD
     Route: 050
     Dates: start: 20210730
  8. CHOLECALCIFEROL [Concomitant]
     Active Substance: CHOLECALCIFEROL
     Indication: Vitamin supplementation
     Dosage: 25 MICROGRAM, QD
     Route: 050
     Dates: start: 20211112
  9. ERYPED [Concomitant]
     Active Substance: ERYTHROMYCIN ETHYLSUCCINATE
     Indication: Dyskinesia
     Dosage: 128 MILLIGRAM, TID
     Route: 048
     Dates: start: 20210326
  10. SYMBICORT [Concomitant]
     Active Substance: BUDESONIDE\FORMOTEROL FUMARATE DIHYDRATE
     Dosage: 1 DOSAGE FORM, QD
     Route: 055
     Dates: start: 20181005

REACTIONS (1)
  - Gastrostomy tube site complication [Recovered/Resolved]

NARRATIVE: CASE EVENT DATE: 20210209
